FAERS Safety Report 9767181 (Version 1)
Quarter: 2013Q4

REPORT INFORMATION
  Report Type: Spontaneous
  Country: US (occurrence: US)
  Receive Date: 20131217
  Receipt Date: 20131217
  Transmission Date: 20140711
  Serious: No
  Sender: FDA-Public Use
  Company Number: US-GLAXOSMITHKLINE-A1042828A

PATIENT
  Age: 69 Year
  Sex: Female

DRUGS (10)
  1. VOTRIENT [Suspect]
     Indication: SOFT TISSUE CANCER
     Dosage: 800MG PER DAY
     Route: 048
     Dates: start: 20130826
  2. MULTIVITAMIN [Concomitant]
  3. ASPIRIN [Concomitant]
  4. LETROZOLE [Concomitant]
  5. METFORMIN [Concomitant]
  6. FUROSEMIDE [Concomitant]
  7. LISINOPRIL [Concomitant]
  8. ATENOLOL [Concomitant]
  9. CLONIDINE [Concomitant]
  10. LIPITOR [Concomitant]

REACTIONS (3)
  - Dysgeusia [Unknown]
  - Decreased appetite [Unknown]
  - Insomnia [Unknown]
